FAERS Safety Report 8293966-3 (Version None)
Quarter: 2012Q2

REPORT INFORMATION
  Report Type: 
  Country: None (occurrence: None)
  Receive Date: 20120418
  Receipt Date: 20120416
  Transmission Date: 20120825
  Serious: Yes (Other)
  Sender: FDA-Public Use
  Company Number: US-PFIZER INC-2012095153

PATIENT
  Sex: Female
  Weight: 81.633 kg

DRUGS (1)
  1. GEODON [Suspect]
     Indication: DEPRESSION
     Dosage: 40 MG, DAILY
     Dates: start: 20110801, end: 20120415

REACTIONS (1)
  - EXCESSIVE EYE BLINKING [None]
